FAERS Safety Report 7824230 (Version 7)
Quarter: 2014Q2

REPORT INFORMATION
  Report Type: Spontaneous
  Country: US (occurrence: US)
  Receive Date: 20110224
  Receipt Date: 20140407
  Transmission Date: 20141212
  Serious: Yes (Hospitalization)
  Sender: FDA-Public Use
  Company Number: US-BIOGENIDEC-2011BI005554

PATIENT
  Age: 62 Year
  Sex: Male

DRUGS (3)
  1. AVONEX [Suspect]
     Indication: MULTIPLE SCLEROSIS
     Route: 030
  2. AVONEX [Suspect]
     Indication: MULTIPLE SCLEROSIS
     Route: 030
     Dates: start: 20060901
  3. AVONEX [Suspect]
     Indication: MULTIPLE SCLEROSIS
     Route: 030
     Dates: start: 20090614

REACTIONS (7)
  - Staphylococcal abscess [Recovered/Resolved]
  - Injection site cellulitis [Recovered/Resolved]
  - Lymphoedema [Unknown]
  - Gait disturbance [Not Recovered/Not Resolved]
  - Injury associated with device [Unknown]
  - Tinnitus [Not Recovered/Not Resolved]
  - Skin discolouration [Not Recovered/Not Resolved]
